FAERS Safety Report 15245550 (Version 5)
Quarter: 2020Q1

REPORT INFORMATION
  Report Type: Spontaneous
  Country: ES (occurrence: ES)
  Receive Date: 20180806
  Receipt Date: 20200110
  Transmission Date: 20200409
  Serious: Yes (Hospitalization, Other)
  Sender: FDA-Public Use
  Company Number: PHHY2018ES061535

PATIENT
  Age: 74 Year
  Sex: Female

DRUGS (19)
  1. BISOPROLOL [Concomitant]
     Active Substance: BISOPROLOL
     Dosage: 3 UNK, UNK
     Route: 065
  2. RISPERIDONE. [Interacting]
     Active Substance: RISPERIDONE
     Indication: PRODUCT USED FOR UNKNOWN INDICATION
     Dosage: 1 OT, UNK
     Route: 065
     Dates: start: 20170817
  3. BISOPROLOL [Concomitant]
     Active Substance: BISOPROLOL
     Dosage: 1-1/2-0
     Route: 065
     Dates: start: 20170414
  4. AMIODARONE [Concomitant]
     Active Substance: AMIODARONE
     Dosage: 200 MG, UNK,(0-1-0) EXCEPT TH AND SUN
     Route: 065
     Dates: start: 20170717
  5. PRAVASTATIN. [Concomitant]
     Active Substance: PRAVASTATIN
     Dosage: 20 MG, PM,(0-0-1)
     Route: 065
  6. PARACETAMOL [Concomitant]
     Active Substance: ACETAMINOPHEN
     Dosage: 1 G, TID,(1-1-1)
     Route: 065
  7. QUETIAPINE. [Suspect]
     Active Substance: QUETIAPINE
     Indication: HALLUCINATION
  8. QUETIAPINE. [Suspect]
     Active Substance: QUETIAPINE
     Indication: DEAFNESS
     Dosage: 25 MG, QD (0-0-1)
     Route: 065
     Dates: end: 20170809
  9. FLUOXETINE [Interacting]
     Active Substance: FLUOXETINE HYDROCHLORIDE
     Indication: DEPRESSION
     Dosage: 20 MG, (1-0-0)
     Route: 065
     Dates: start: 201403
  10. BISOPROLOL [Concomitant]
     Active Substance: BISOPROLOL
     Indication: PRODUCT USED FOR UNKNOWN INDICATION
     Dosage: 2.5 MG, (1-1/2-0)
     Route: 065
     Dates: start: 20170414
  11. AMIODARONE [Concomitant]
     Active Substance: AMIODARONE
     Indication: PRODUCT USED FOR UNKNOWN INDICATION
     Dosage: 200 MG, QD (0-1-0)
     Route: 065
     Dates: start: 20170717
  12. LOSARTAN HYDROCHLOROTHIAZIDE ACTAVIS [Concomitant]
     Active Substance: HYDROCHLOROTHIAZIDE\LOSARTAN POTASSIUM
     Dosage: UNK, AM
     Route: 065
  13. AMLODIPINO [Concomitant]
     Active Substance: AMLODIPINE BESYLATE
     Indication: PRODUCT USED FOR UNKNOWN INDICATION
     Dosage: 5 MG, QD
     Route: 065
     Dates: start: 20170620
  14. PRAVASTATIN. [Concomitant]
     Active Substance: PRAVASTATIN
     Indication: PRODUCT USED FOR UNKNOWN INDICATION
     Dosage: 20 MG, QID
     Route: 065
     Dates: start: 20170426
  15. FLUPENTIXOL [Concomitant]
     Active Substance: FLUPENTIXOL
     Indication: PRODUCT USED FOR UNKNOWN INDICATION
     Dosage: UNK, AM
     Route: 065
  16. LEVETIRACETAM. [Suspect]
     Active Substance: LEVETIRACETAM
     Indication: PRODUCT USED FOR UNKNOWN INDICATION
     Dosage: 500 MG, 1-0-1
     Route: 065
     Dates: start: 201706, end: 201708
  17. LOSARTAN HYDROCHLOROTHIAZIDE ACTAVIS [Concomitant]
     Active Substance: HYDROCHLOROTHIAZIDE\LOSARTAN POTASSIUM
     Indication: PRODUCT USED FOR UNKNOWN INDICATION
     Dosage: UNK, AM (1 DAY)
     Route: 065
     Dates: start: 20170403
  18. LOSARTAN HYDROCHLOROTHIAZIDE ACTAVIS [Concomitant]
     Active Substance: HYDROCHLOROTHIAZIDE\LOSARTAN POTASSIUM
     Dosage: UNK, Q4D
     Route: 065
  19. PARACETAMOL [Concomitant]
     Active Substance: ACETAMINOPHEN
     Indication: PRODUCT USED FOR UNKNOWN INDICATION
     Dosage: 1 G, (1-1-1)
     Route: 065
     Dates: start: 20170418

REACTIONS (14)
  - Drug interaction [Unknown]
  - Oliguria [Unknown]
  - Hyperthermia [Unknown]
  - Hallucination [Unknown]
  - Serotonin syndrome [Unknown]
  - Hyperhidrosis [Unknown]
  - Hallucination, auditory [Unknown]
  - Weight increased [Unknown]
  - Tinnitus [Unknown]
  - Suicidal ideation [Unknown]
  - Oedema [Unknown]
  - Sudden hearing loss [Unknown]
  - Sleep disorder [Unknown]
  - Polyuria [Unknown]
